FAERS Safety Report 20052038 (Version 1)
Quarter: 2021Q4

REPORT INFORMATION
  Report Type: Spontaneous
  Country: FR (occurrence: FR)
  Receive Date: 20211110
  Receipt Date: 20211110
  Transmission Date: 20220303
  Serious: Yes (Death, Other)
  Sender: FDA-Public Use
  Company Number: FR-AMGEN-FRASP2021173350

PATIENT

DRUGS (1)
  1. PANITUMUMAB [Suspect]
     Active Substance: PANITUMUMAB
     Indication: Colorectal cancer metastatic
     Dosage: UNK
     Route: 065

REACTIONS (6)
  - Death [Fatal]
  - Venoocclusive liver disease [Unknown]
  - Nodular regenerative hyperplasia [Unknown]
  - Hepatic steatosis [Unknown]
  - Liver disorder [Unknown]
  - Lung disorder [Unknown]
